FAERS Safety Report 5271628-4 (Version None)
Quarter: 2007Q1

REPORT INFORMATION
  Report Type: 
  Country: None (occurrence: None)
  Receive Date: 20070321
  Receipt Date: 20070316
  Transmission Date: 20070707
  Serious: Yes (Life-Threatening)
  Sender: FDA-Public Use
  Company Number: US-MERCK-0703USA03476

PATIENT
  Age: 57 Year
  Sex: Female

DRUGS (2)
  1. JANUVIA [Suspect]
     Indication: DIABETES MELLITUS
     Route: 048
     Dates: start: 20070305, end: 20070307
  2. TARKA [Concomitant]
     Route: 065

REACTIONS (1)
  - ANAPHYLACTIC REACTION [None]
